FAERS Safety Report 21624498 (Version 1)
Quarter: 2022Q4

REPORT INFORMATION
  Report Type: Spontaneous
  Country: IL (occurrence: IL)
  Receive Date: 20221121
  Receipt Date: 20221121
  Transmission Date: 20230113
  Serious: Yes (Death, Other)
  Sender: FDA-Public Use
  Company Number: IL-002147023-NVSC2022IL259432

PATIENT

DRUGS (2)
  1. RUXOLITINIB [Suspect]
     Active Substance: RUXOLITINIB
     Indication: Chronic graft versus host disease
     Dosage: 10 MG, BID
     Route: 065
  2. RUXOLITINIB [Suspect]
     Active Substance: RUXOLITINIB
     Dosage: 10 MG (MORNING), 5 MG (EVENING) (START MORE THAN 1.5 YEARS AGO)
     Route: 065

REACTIONS (5)
  - JC virus infection [Fatal]
  - Epstein-Barr virus infection [Unknown]
  - Progressive multifocal leukoencephalopathy [Fatal]
  - Cytopenia [Unknown]
  - Hemiparesis [Fatal]
